FAERS Safety Report 6155260-6 (Version None)
Quarter: 2009Q2

REPORT INFORMATION
  Report Type: 
  Country: None (occurrence: None)
  Receive Date: 20090415
  Receipt Date: 20090408
  Transmission Date: 20091009
  Serious: Yes (Hospitalization)
  Sender: FDA-Public Use
  Company Number: JP-ASTRAZENECA-2009SE01481

PATIENT
  Age: 90 Year
  Sex: Male

DRUGS (2)
  1. ECARD COMBINATION TABLETS HD [Suspect]
     Indication: HYPERTENSION
     Route: 048
     Dates: start: 20090318, end: 20090407
  2. LASIX [Concomitant]
     Route: 065

REACTIONS (2)
  - CARDIAC FAILURE [None]
  - HYPERURICAEMIA [None]
